FAERS Safety Report 7027783 (Version 5)
Quarter: 2013Q2

REPORT INFORMATION
  Report Type: Spontaneous
  Country: CA (occurrence: CA)
  Receive Date: 20090619
  Receipt Date: 20130430
  Transmission Date: 20140414
  Serious: Yes (Death, Hospitalization, Other)
  Sender: FDA-Public Use
  Company Number: CA-PFIZER INC-2009226020

PATIENT
  Age: 69 Year
  Sex: Female

DRUGS (29)
  1. LIPITOR [Suspect]
     Dosage: 20 MG, 1X/DAY
     Dates: start: 20071106, end: 2009
  2. LIPITOR [Suspect]
     Dosage: 80 MG, 1X/DAY
     Dates: start: 2009
  3. METOPROLOL [Concomitant]
     Dosage: 75 MG, 1X/DAY
  4. METOPROLOL [Concomitant]
     Dosage: 12.5 MG, 2X/DAY
  5. METOPROLOL [Concomitant]
     Dosage: 25 MG, 2X/DAY
     Dates: start: 20051122
  6. PLAVIX [Concomitant]
     Dosage: 75 MG, 1X/DAY
  7. DIABETA [Concomitant]
     Dosage: UNK
     Dates: end: 200902
  8. METFORMIN [Concomitant]
     Dosage: 1 G, 2X/DAY
     Dates: end: 200903
  9. METFORMIN [Concomitant]
     Dosage: 500 MG, 2X/DAY
     Dates: end: 200903
  10. ASA [Concomitant]
     Dosage: UNK
  11. ASA [Concomitant]
     Dosage: 81 MG, UNK
  12. ASA [Concomitant]
     Dosage: 325 MG, 1X/DAY
  13. MEVACOR [Concomitant]
     Dosage: UNK
     Dates: end: 20010720
  14. CELEXA [Concomitant]
     Dosage: 20 MG, 1X/DAY
     Dates: start: 20050212
  15. HYDRALAZINE [Concomitant]
     Dosage: 50 MG, 4X/DAY
  16. SENOKOT [Concomitant]
     Dosage: 1 TABLET, 2X/DAY
  17. SENOKOT [Concomitant]
     Dosage: 2 TABLETS, 1X/DAY
  18. TRAZODONE [Concomitant]
     Dosage: 12.5 MG, NIGHTLY, AS NEEDED
  19. NOVOMIX [Concomitant]
     Dosage: 14 UNITS IN THE MORNING AND 12 UNITS IN THE EVENING
     Dates: start: 200901, end: 200903
  20. NOVOMIX [Concomitant]
     Dosage: 4 UNITS IN THE MORNING AND 6 UNITS IN THE EVENING
     Dates: start: 200903
  21. NITRO-SPRAY [Concomitant]
     Indication: ANGINA PECTORIS
     Dosage: UNK
  22. ATACAND [Concomitant]
     Dosage: 8 MG, 1X/DAY
     Dates: start: 20051122, end: 20090319
  23. ATACAND [Concomitant]
     Dosage: UNK
     Dates: end: 200511
  24. MAVIK [Concomitant]
     Dosage: 1 MG, 1X/DAY
     Dates: start: 20051122
  25. CHLORTHALIDONE [Concomitant]
     Dosage: 50 MG, 1X/DAY
  26. CHLORTHALIDONE [Concomitant]
     Dosage: 25 MG, 1X/DAY
     Dates: start: 20080903
  27. GLYBURIDE [Concomitant]
     Dosage: UNK
     Dates: end: 200902
  28. NITRODUR II [Concomitant]
     Dosage: 0.6 MG, 1X/DAY
  29. COLACE [Concomitant]
     Dosage: 20 MG, 1X/DAY

REACTIONS (8)
  - Renal failure acute [Fatal]
  - Acidosis [Fatal]
  - Infection [Fatal]
  - Duodenal perforation [Recovered/Resolved]
  - Acute myocardial infarction [Recovered/Resolved]
  - Rhabdomyolysis [Recovered/Resolved]
  - Fall [Unknown]
  - Depressed mood [Not Recovered/Not Resolved]
